FAERS Safety Report 6368246-3 (Version None)
Quarter: 2009Q3

REPORT INFORMATION
  Report Type: 
  Country: None (occurrence: None)
  Receive Date: 20090922
  Receipt Date: 20090911
  Transmission Date: 20100115
  Serious: Yes (Other)
  Sender: FDA-Public Use
  Company Number: GB-BRISTOL-MYERS SQUIBB COMPANY-14784706

PATIENT
  Age: 66 Year
  Sex: Female

DRUGS (3)
  1. MITOMYCIN [Suspect]
     Indication: BREAST CANCER
     Dosage: MITOMYCIN INJECTION
     Route: 065
  2. CISPLATIN [Suspect]
     Indication: BREAST CANCER
     Route: 065
  3. IFOSFAMIDE [Suspect]
     Indication: BREAST CANCER
     Dosage: 3 DOSAGEFORM= 3G/M2

REACTIONS (2)
  - RENAL IMPAIRMENT [None]
  - SKIN INDURATION [None]
